FAERS Safety Report 23516246 (Version 3)
Quarter: 2024Q1

REPORT INFORMATION
  Report Type: Spontaneous
  Country: BR (occurrence: BR)
  Receive Date: 20240213
  Receipt Date: 20240305
  Transmission Date: 20240410
  Serious: Yes (Other)
  Sender: FDA-Public Use
  Company Number: BR-UCBSA-2024006704

PATIENT
  Sex: Male

DRUGS (4)
  1. KEPPRA [Suspect]
     Active Substance: LEVETIRACETAM
     Indication: Dizziness
     Dosage: 250 MG -1.5 DOSAGE FORM, 2X/DAY (BID), 375 MG TWICE DAILY, 250MG - ONE AND A HALF TABLETS IN THE MOR
     Dates: start: 20231005, end: 202401
  2. KEPPRA [Suspect]
     Active Substance: LEVETIRACETAM
     Indication: Vascular dementia
  3. KEPPRA [Suspect]
     Active Substance: LEVETIRACETAM
     Indication: Dementia Alzheimer^s type
  4. OXYGEN [Concomitant]
     Active Substance: OXYGEN
     Indication: Emphysema
     Dosage: UNK

REACTIONS (11)
  - Skin infection [Unknown]
  - Eczema [Unknown]
  - Skin ulcer [Unknown]
  - Skin lesion [Unknown]
  - Wound complication [Unknown]
  - Wound infection [Unknown]
  - Product physical issue [Unknown]
  - Product use in unapproved indication [Unknown]
  - Wrong technique in product usage process [Unknown]
  - Product availability issue [Unknown]
  - Therapy interrupted [Unknown]

NARRATIVE: CASE EVENT DATE: 20230101
